FAERS Safety Report 14181795 (Version 1)
Quarter: 2017Q4

REPORT INFORMATION
  Report Type: Spontaneous
  Country: US (occurrence: None)
  Receive Date: 20171113
  Receipt Date: 20171113
  Transmission Date: 20180321
  Serious: Yes (Hospitalization, Disabling, Congenital Anomaly)
  Sender: FDA-Public Use
  Company Number: None

PATIENT
  Age: 69 Year
  Sex: Female
  Weight: 81.56 kg

DRUGS (6)
  1. IRON [Concomitant]
     Active Substance: IRON
  2. CALCIUM [Concomitant]
     Active Substance: CALCIUM
  3. VITAMIN C [Concomitant]
     Active Substance: ASCORBIC ACID
  4. MULTIVITAMIN [Concomitant]
     Active Substance: VITAMINS
  5. VITAMIN D [Concomitant]
     Active Substance: CHOLECALCIFEROL
  6. HALDOL [Suspect]
     Active Substance: HALOPERIDOL
     Indication: PRODUCT USED FOR UNKNOWN INDICATION
     Dates: start: 197806

REACTIONS (2)
  - Abnormal behaviour [None]
  - Sleep apnoea syndrome [None]

NARRATIVE: CASE EVENT DATE: 2006
